FAERS Safety Report 5231127-2 (Version None)
Quarter: 2007Q1

REPORT INFORMATION
  Report Type: 
  Country: None (occurrence: None)
  Receive Date: 20070206
  Receipt Date: 20070126
  Transmission Date: 20070707
  Serious: Yes (Other)
  Sender: FDA-Public Use
  Company Number: FR-ROCHE-480081

PATIENT
  Age: 17 Year
  Sex: Male

DRUGS (1)
  1. ROACCUTANE [Suspect]
     Indication: DRUG USE FOR UNKNOWN INDICATION
     Route: 065
     Dates: start: 20060905, end: 20061115

REACTIONS (3)
  - HODGKIN'S DISEASE [None]
  - MUCOSAL DRYNESS [None]
  - URETHRAL PAIN [None]
